FAERS Safety Report 8048008-1 (Version None)
Quarter: 2012Q1

REPORT INFORMATION
  Report Type: 
  Country: None (occurrence: None)
  Receive Date: 20120116
  Receipt Date: 20120106
  Transmission Date: 20120608
  Serious: Yes (Other)
  Sender: FDA-Public Use
  Company Number: BR-AMGEN-BRASP2012001836

PATIENT
  Age: 33 Year
  Sex: Male
  Weight: 118 kg

DRUGS (5)
  1. PREDNISONE [Concomitant]
     Dosage: 5 MG, 1X/DAY
     Dates: start: 20110901
  2. CALCIUM CARBONATE W/COLECALCIFEROL [Concomitant]
     Dosage: 625 MG, 1X/DAY
     Dates: start: 20110701
  3. INDOMETHACIN [Concomitant]
     Dosage: 50 MG, 1X/DAY
     Dates: start: 20111001
  4. ENBREL [Suspect]
     Indication: RHEUMATOID ARTHRITIS
     Dosage: UNK
     Route: 058
     Dates: start: 20110901
  5. ENALAPRIL MALEATE [Concomitant]
     Dosage: 20 MG, 1X/DAY
     Dates: start: 20110701

REACTIONS (3)
  - ABDOMINAL MASS [None]
  - PRURITUS [None]
  - NEOPLASM [None]
